FAERS Safety Report 10147382 (Version 1)
Quarter: 2014Q2

REPORT INFORMATION
  Report Type: Report from Study
  Country: US (occurrence: US)
  Receive Date: 20140501
  Receipt Date: 20140501
  Transmission Date: 20141212
  Serious: Yes (Other)
  Sender: FDA-Public Use
  Company Number: US-MYLANLABS-2014S1009763

PATIENT
  Age: 17 Year
  Sex: Female

DRUGS (4)
  1. AMNESTEEM CAPSULES [Suspect]
     Dates: start: 20131125, end: 20140422
  2. CLARAVIS [Suspect]
  3. AMNESTEEM CAPSULES [Suspect]
     Dates: end: 20140422
  4. ORAL CONTRACEPTIVE NOS [Concomitant]

REACTIONS (1)
  - Exposure during pregnancy [Not Recovered/Not Resolved]
